FAERS Safety Report 10990951 (Version 4)
Quarter: 2015Q2

REPORT INFORMATION
  Report Type: Report from Study
  Country: US (occurrence: US)
  Receive Date: 20150406
  Receipt Date: 20150520
  Transmission Date: 20150821
  Serious: Yes (Other)
  Sender: FDA-Public Use
  Company Number: US-SA-2015SA037774

PATIENT
  Age: 60 Year
  Sex: Female

DRUGS (2)
  1. AUBAGIO [Suspect]
     Active Substance: TERIFLUNOMIDE
     Indication: MULTIPLE SCLEROSIS
     Route: 048
     Dates: end: 20150423
  2. AUBAGIO [Suspect]
     Active Substance: TERIFLUNOMIDE
     Indication: MULTIPLE SCLEROSIS
     Route: 048
     Dates: start: 20150106, end: 20150325

REACTIONS (21)
  - Bronchitis [Unknown]
  - Malaise [Unknown]
  - Upper-airway cough syndrome [Unknown]
  - Rash erythematous [Recovered/Resolved]
  - Paraesthesia [Unknown]
  - Urticaria [Unknown]
  - Pain in extremity [Unknown]
  - General physical health deterioration [Unknown]
  - Pruritus [Unknown]
  - Malaise [Unknown]
  - Feeling abnormal [Unknown]
  - Pruritus [Recovered/Resolved]
  - Alopecia [Unknown]
  - Abdominal discomfort [Unknown]
  - Urinary tract infection [Unknown]
  - Peripheral swelling [Unknown]
  - Stress [Unknown]
  - Dyspnoea [Unknown]
  - Chest discomfort [Unknown]
  - Diarrhoea [Unknown]
  - Cough [Unknown]

NARRATIVE: CASE EVENT DATE: 2015
